APPROVED DRUG PRODUCT: CALCIPARINE
Active Ingredient: HEPARIN CALCIUM
Strength: 25,000 UNITS/ML
Dosage Form/Route: INJECTABLE;INJECTION
Application: N018237 | Product #001
Applicant: SANOFI AVENTIS US LLC
Approved: Approved Prior to Jan 1, 1982 | RLD: No | RS: No | Type: DISCN